FAERS Safety Report 4522590-0 (Version None)
Quarter: 2004Q4

REPORT INFORMATION
  Report Type: 
  Country: None (occurrence: None)
  Receive Date: 20041207
  Receipt Date: 20041124
  Transmission Date: 20050328
  Serious: Yes (Other)
  Sender: FDA-Public Use
  Company Number: 2004092578

PATIENT
  Sex: Female

DRUGS (1)
  1. HYDROCOROTISONE SODIUM SUCCINATE (HYDROCORTISONE SODIUM SUCCINATE) [Suspect]
     Indication: URTICARIA
     Dosage: 200 MG (1 D), INTRAVENOUS
     Route: 042
     Dates: start: 20041110, end: 20041112

REACTIONS (4)
  - DISEASE RECURRENCE [None]
  - LARYNGEAL OEDEMA [None]
  - STRIDOR [None]
  - URTICARIA [None]
